FAERS Safety Report 7603303-2 (Version None)
Quarter: 2011Q3

REPORT INFORMATION
  Report Type: 
  Country: None (occurrence: None)
  Receive Date: 20110701
  Receipt Date: 20110617
  Transmission Date: 20111222
  Serious: Yes (Death, Other)
  Sender: FDA-Public Use
  Company Number: MC201100282

PATIENT
  Age: 82 Year
  Sex: Male

DRUGS (1)
  1. ANGIOMAX [Suspect]
     Indication: PERCUTANEOUS CORONARY INTERVENTION
     Dosage: 2 VIALS, FERN ACCESS PCI
     Dates: start: 20110608, end: 20110608

REACTIONS (6)
  - MEDICATION ERROR [None]
  - OVERDOSE [None]
  - MYOCARDIAL INFARCTION [None]
  - HEPATIC HAEMORRHAGE [None]
  - HAEMORRHAGE [None]
  - WRONG TECHNIQUE IN DRUG USAGE PROCESS [None]
